FAERS Safety Report 7681473-8 (Version None)
Quarter: 2011Q3

REPORT INFORMATION
  Report Type: 
  Country: None (occurrence: None)
  Receive Date: 20110812
  Receipt Date: 20110727
  Transmission Date: 20111222
  Serious: Yes (Other)
  Sender: FDA-Public Use
  Company Number: PHHY2011CH67901

PATIENT
  Sex: Male
  Weight: 2.25 kg

DRUGS (4)
  1. NIFEDIPINE [Concomitant]
     Dosage: UNK UKN, UNK
  2. LOSARTAN POTASSIUM [Suspect]
     Dosage: 50 MG, UNK
  3. HYDROXYCHLOROQUINE [Concomitant]
     Dosage: UNK UKN, UNK
  4. METOPROLOL TARTRATE [Suspect]
     Dosage: UNK UKN, UNK

REACTIONS (3)
  - PREMATURE BABY [None]
  - SMALL FOR DATES BABY [None]
  - MATERNAL EXPOSURE DURING PREGNANCY [None]
